FAERS Safety Report 21280971 (Version 10)
Quarter: 2023Q2

REPORT INFORMATION
  Report Type: Report from Study
  Country: FR (occurrence: None)
  Receive Date: 20220901
  Receipt Date: 20230623
  Transmission Date: 20230721
  Serious: Yes (Hospitalization)
  Sender: FDA-Public Use
  Company Number: FR-Eisai Medical Research-EC-2022-122309

PATIENT
  Age: 82 Year
  Sex: Male
  Weight: 62 kg

DRUGS (14)
  1. LENVATINIB [Suspect]
     Active Substance: LENVATINIB
     Indication: Ductal adenocarcinoma of pancreas
     Route: 048
     Dates: start: 20220726, end: 20220808
  2. LENVATINIB [Suspect]
     Active Substance: LENVATINIB
     Dosage: STARTING DOSE AT 14 MG, DOSE REDUCED AT 14, 10 AND 8 MG
     Route: 048
     Dates: start: 20220818, end: 20220822
  3. LENVATINIB [Suspect]
     Active Substance: LENVATINIB
     Dosage: STARTING DOSE AT 10 MILLIGRAM, FLUCTUATING DOSAGE
     Route: 048
     Dates: start: 20220823, end: 20230423
  4. PEMBROLIZUMAB [Suspect]
     Active Substance: PEMBROLIZUMAB
     Indication: Ductal adenocarcinoma of pancreas
     Route: 042
     Dates: start: 20220726, end: 20220726
  5. PEMBROLIZUMAB [Suspect]
     Active Substance: PEMBROLIZUMAB
     Route: 042
     Dates: start: 20220906, end: 20230404
  6. BELZUTIFAN [Suspect]
     Active Substance: BELZUTIFAN
     Indication: Ductal adenocarcinoma of pancreas
     Route: 048
     Dates: start: 20220726, end: 20220808
  7. BELZUTIFAN [Suspect]
     Active Substance: BELZUTIFAN
     Dosage: STARTING DOSE AT 120 MG (DOSE REDUCED AT 80 MG)
     Route: 048
     Dates: start: 20220809, end: 20220822
  8. BELZUTIFAN [Suspect]
     Active Substance: BELZUTIFAN
     Route: 048
     Dates: start: 20220823
  9. ACETAMINOPHEN [Concomitant]
     Active Substance: ACETAMINOPHEN
     Dates: start: 202107
  10. PENICILLIN V [Concomitant]
     Active Substance: PENICILLIN V
     Dates: start: 202106
  11. SOTALOL [Concomitant]
     Active Substance: SOTALOL
     Dates: start: 202201, end: 20220824
  12. CAPTOPRIL [Concomitant]
     Active Substance: CAPTOPRIL
     Dates: start: 202201, end: 20220827
  13. AMLODIPINE BESYLATE [Concomitant]
     Active Substance: AMLODIPINE BESYLATE
     Dates: start: 202203, end: 20220824
  14. MICROLAX [SODIUM CITRATE;SODIUM LAURYL SULFOACETATE] [Concomitant]
     Dates: start: 202208, end: 202208

REACTIONS (1)
  - General physical health deterioration [Recovered/Resolved]

NARRATIVE: CASE EVENT DATE: 20220821
